FAERS Safety Report 8875744 (Version 5)
Quarter: 2013Q1

REPORT INFORMATION
  Report Type: Report from Study
  Country: FR (occurrence: FR)
  Receive Date: 20121030
  Receipt Date: 20130211
  Transmission Date: 20140127
  Serious: Yes (Hospitalization, Other)
  Sender: FDA-Public Use
  Company Number: PHHO2012FR014083

PATIENT
  Age: 10 Year
  Sex: Female
  Weight: 28.6 kg

DRUGS (15)
  1. ZOLEDRONATE [Suspect]
     Indication: BONE SARCOMA
     Dosage: 1.4 MG, LAST DOSE BEFORE REACTION (2.8 MG TOTAL DOSE)
     Route: 042
     Dates: start: 20120619
  2. ZOLEDRONATE [Suspect]
     Dosage: 1.5 MG LAST DOSE BEFORE REACTION (7.1 MG TOTAL DOSE)
     Dates: end: 20121101
  3. METHOTREXATE [Suspect]
     Indication: BONE SARCOMA
     Dosage: 12.7 G LAST DOSE (38.1 G TOTAL DOSE) BEFORE REACTION
     Route: 042
     Dates: start: 20120616, end: 20120630
  4. METHOTREXATE [Suspect]
     Dosage: 12.8 G LAST DOSE (63.7 G TOTAL DOSE) BEFORE REACTION
     Route: 042
  5. METHOTREXATE [Suspect]
     Dosage: 13 G, (128.5 G TOTAL DOSE BEFORE REACTION)
  6. METHOTREXATE [Suspect]
     Dosage: 14 G, UNK
     Route: 042
     Dates: end: 20130125
  7. VP-16 [Suspect]
     Indication: BONE SARCOMA
     Dosage: 312 MG, LAST AND TOTAL DOSE BEFORE REACTION
     Route: 042
     Dates: start: 20120707, end: 20120710
  8. VP-16 [Suspect]
     Dosage: 320 MG, LAST DOSE AND 632 MG TOTAL DOSE BEFORE REACTION
     Route: 042
  9. VP-16 [Suspect]
     Dosage: 340 MG, DOSE BEFORE EVENT
     Route: 042
     Dates: end: 20121219
  10. IFOSFAMIDE [Suspect]
     Indication: BONE SARCOMA
     Dosage: 1.4 G LAST DOSE AND TOTAL DOSE BEFORE REACTION
     Route: 042
     Dates: start: 20120707, end: 20120710
  11. IFOSFAMIDE [Suspect]
     Dosage: 12.6 G, LAST DOSE AND 25 G TOTAL DOSE BEFORE REACTION
     Route: 042
  12. IFOSFAMIDE [Suspect]
     Dosage: 13 G,  LAST DOSE AND 50.6 G TOTAL DOSE BEFORE REACTION
  13. IFOSFAMIDE [Suspect]
     Dosage: 13.44 G, UNK
     Route: 042
     Dates: end: 20121219
  14. BACTRIM [Concomitant]
     Indication: PROPHYLAXIS
     Dosage: UNK
     Route: 048
     Dates: start: 20120619
  15. CALCIUM D3 [Concomitant]
     Indication: PROPHYLAXIS
     Dosage: UNK
     Route: 048
     Dates: start: 20120619

REACTIONS (6)
  - Skin necrosis [Recovered/Resolved]
  - Anaemia [Recovered/Resolved]
  - Pyrexia [Recovered/Resolved]
  - Infection [Recovered/Resolved]
  - Superinfection [Not Recovered/Not Resolved]
  - Febrile bone marrow aplasia [Recovered/Resolved]
